FAERS Safety Report 14055138 (Version 1)
Quarter: 2017Q4

REPORT INFORMATION
  Report Type: Spontaneous
  Country: US (occurrence: US)
  Receive Date: 20171006
  Receipt Date: 20171006
  Transmission Date: 20180321
  Serious: Yes (Other)
  Sender: FDA-Public Use
  Company Number: None

PATIENT
  Age: 47 Year
  Sex: Female
  Weight: 66.2 kg

DRUGS (1)
  1. DOCETAXEL. [Suspect]
     Active Substance: DOCETAXEL
     Indication: BREAST CANCER
     Dosage: OTHER FREQUENCY:EVERY 21 DAYS;?
     Route: 041
     Dates: start: 20170818, end: 20170908

REACTIONS (4)
  - Infusion related reaction [None]
  - Chest discomfort [None]
  - Throat tightness [None]
  - Dysphonia [None]

NARRATIVE: CASE EVENT DATE: 20170908
